FAERS Safety Report 8458901 (Version 3)
Quarter: 2013Q1

REPORT INFORMATION
  Report Type: Report from Study
  Country: NL (occurrence: NL)
  Receive Date: 20120314
  Receipt Date: 20130219
  Transmission Date: 20140127
  Serious: Yes (Hospitalization)
  Sender: FDA-Public Use
  Company Number: NL-BAYER-2012-021245

PATIENT
  Age: 63 Year
  Sex: Male
  Weight: 81 kg

DRUGS (8)
  1. SIMVASTATIN [Concomitant]
     Indication: HYPERCHOLESTEROLAEMIA
     Dosage: DAILY DOSE 40 MG
     Route: 048
     Dates: start: 20120221
  2. RIVAROXABAN [Suspect]
     Indication: PERCUTANEOUS CORONARY INTERVENTION
     Dosage: 1 DF, ONCE
     Route: 048
     Dates: start: 20120228, end: 20120228
  3. HEPARIN [Suspect]
     Indication: PERCUTANEOUS CORONARY INTERVENTION
     Dosage: 4050 IU, UNK
     Dates: start: 20120228, end: 20120228
  4. ACETYLSALICYLIC ACID({=100 MG) [Interacting]
     Indication: THROMBOSIS PROPHYLAXIS
     Dosage: DAILY DOSE 80 MG
     Route: 048
     Dates: start: 2002
  5. CLOPIDOGREL [Interacting]
     Indication: THROMBOSIS PROPHYLAXIS
     Dosage: DAILY DOSE 75 MG
     Route: 048
     Dates: start: 20120221
  6. BISOPROLOL [Concomitant]
     Indication: ANGINA PECTORIS
     Dosage: DAILY DOSE 2.5 MG
     Route: 048
     Dates: start: 2002
  7. ESOMEPRAZOLE [Concomitant]
     Indication: PROPHYLAXIS
     Dosage: DAILY DOSE 40 MG
     Route: 048
     Dates: start: 20120221
  8. PERINDOPRIL [Concomitant]
     Indication: ANGINA PECTORIS
     Dosage: DAILY DOSE 4 MG
     Route: 048
     Dates: start: 20120221

REACTIONS (1)
  - Vascular pseudoaneurysm [Recovered/Resolved]
